FAERS Safety Report 5657294-4 (Version None)
Quarter: 2008Q1

REPORT INFORMATION
  Report Type: 
  Country: None (occurrence: None)
  Receive Date: 20080310
  Receipt Date: 20070816
  Transmission Date: 20080703
  Serious: Yes (Death, Other)
  Sender: FDA-Public Use
  Company Number: US-PFIZER INC-2007070827

PATIENT

DRUGS (1)
  1. XALATAN [Suspect]

REACTIONS (2)
  - BLINDNESS [None]
  - DEATH [None]
